FAERS Safety Report 7778694-2 (Version None)
Quarter: 2011Q3

REPORT INFORMATION
  Report Type: 
  Country: None (occurrence: None)
  Receive Date: 20110926
  Receipt Date: 20110916
  Transmission Date: 20111222
  Serious: Yes (Hospitalization, Other)
  Sender: FDA-Public Use
  Company Number: US-BAYER-2011-021127

PATIENT
  Age: 35 Year
  Sex: Female
  Weight: 58 kg

DRUGS (8)
  1. YAZ [Suspect]
     Indication: OVARIAN CYST
  2. IBUPROFEN [Concomitant]
     Dosage: 800 MG, UNK
     Dates: start: 20090101
  3. SYMBICORT [Concomitant]
  4. YAZ [Suspect]
     Indication: CONTRACEPTION
  5. YAZ [Suspect]
     Indication: ACNE
     Dosage: UNK
     Dates: start: 20090201, end: 20090301
  6. DARVOCET [Concomitant]
     Dosage: UNK
     Dates: start: 20090101
  7. XOPENEX [Concomitant]
  8. ALBUTEROL [Concomitant]

REACTIONS (3)
  - PULMONARY EMBOLISM [None]
  - PAIN [None]
  - PULMONARY INFARCTION [None]
